FAERS Safety Report 23563780 (Version 2)
Quarter: 2024Q1

REPORT INFORMATION
  Report Type: Spontaneous
  Country: NL (occurrence: NL)
  Receive Date: 20240226
  Receipt Date: 20240326
  Transmission Date: 20240410
  Serious: Yes (Life-Threatening)
  Sender: FDA-Public Use
  Company Number: None

PATIENT
  Age: 75 Year
  Sex: Male
  Weight: 86 kg

DRUGS (16)
  1. EMPAGLIFLOZIN [Suspect]
     Active Substance: EMPAGLIFLOZIN
     Indication: Diabetes mellitus
     Dates: start: 20240216, end: 20240217
  2. EMPAGLIFLOZIN [Suspect]
     Active Substance: EMPAGLIFLOZIN
     Indication: Cardiac failure chronic
  3. SIMVASTATIN [Concomitant]
     Active Substance: SIMVASTATIN
     Indication: Product used for unknown indication
     Dosage: FILMOMHULDE TABLET, 20 MG (MILLIGRAM)
  4. OMEPRAZOLE [Concomitant]
     Active Substance: OMEPRAZOLE
     Indication: Product used for unknown indication
     Dosage: MAAGSAPRESISTENTE CAPSULE, 20 MG (MILLIGRAM)
  5. APIXABAN TABLET 5MG / Brand name not specified [Concomitant]
     Indication: Product used for unknown indication
     Dosage: TABLET, 5 MG (MILLIGRAM)
  6. CICLESONIDE AEROSOL 160UG/DO / Brand name not specified [Concomitant]
     Indication: Product used for unknown indication
     Dosage: AEROSOL, 160 ?G/DOSIS (MICROGRAM PER DOSIS)
  7. EPLERENON TABLET 50MG / Brand name not specified [Concomitant]
     Indication: Product used for unknown indication
     Dosage: TABLET, 50 MG (MILLIGRAM)
  8. LEVOTHYROXINE CAPSULE  75UG / Brand name not specified [Concomitant]
     Indication: Product used for unknown indication
     Dosage: CAPSULE, 75 ?G (MICROGRAM)
  9. CANDESARTAN TABLET 32MG / ATACAND TABLET 32MG [Concomitant]
     Indication: Product used for unknown indication
     Dosage: TABLET, 32 MG (MILLIGRAM)
  10. APIXABAN TABLET 5MG / Brand name not specified [Concomitant]
     Indication: Product used for unknown indication
  11. LEVOTHYROXINE CAPSULE  75UG / Brand name not specified [Concomitant]
     Indication: Product used for unknown indication
  12. EPLERENON TABLET 50MG / Brand name not specified [Concomitant]
     Indication: Product used for unknown indication
  13. SIMVASTATIN [Concomitant]
     Active Substance: SIMVASTATIN
     Indication: Product used for unknown indication
  14. CANDESARTAN TABLET 32MG / ATACAND TABLET 32MG [Concomitant]
     Indication: Product used for unknown indication
  15. CICLESONIDE AEROSOL 160UG/DO / Brand name not specified [Concomitant]
     Indication: Product used for unknown indication
     Dosage: AEROSOL 160 ?G/DOSIS (MICROGRAM PER DOSIS)
  16. OMEPRAZOLE [Concomitant]
     Active Substance: OMEPRAZOLE
     Indication: Product used for unknown indication

REACTIONS (4)
  - Ventricular fibrillation [Recovering/Resolving]
  - Cardiac arrest [Recovering/Resolving]
  - Ventricular tachycardia [Recovering/Resolving]
  - Circulatory collapse [Recovering/Resolving]
